FAERS Safety Report 6123310-9 (Version None)
Quarter: 2009Q1

REPORT INFORMATION
  Report Type: 
  Country: None (occurrence: None)
  Receive Date: 20090318
  Receipt Date: 20090312
  Transmission Date: 20090719
  Serious: Yes (Hospitalization, Other)
  Sender: FDA-Public Use
  Company Number: DE-PFIZER INC-2007079081

PATIENT

DRUGS (6)
  1. SERTRALINE [Suspect]
     Indication: DEPRESSION
     Dates: start: 20070101
  2. LITHIUM [Interacting]
     Indication: BIPOLAR DISORDER
     Dosage: UNK
     Dates: start: 20070101
  3. TRAZODONE HYDROCHLORIDE [Interacting]
     Indication: DEPRESSION
     Dates: start: 20070101
  4. PHENYTOIN AND PHENYTOIN SODIUM [Interacting]
     Indication: CONVULSION
  5. ESCITALOPRAM [Interacting]
     Indication: DEPRESSION
     Dates: start: 20070101
  6. AMLODIPINE [Concomitant]

REACTIONS (4)
  - DRUG INEFFECTIVE [None]
  - DRUG INTERACTION [None]
  - HYPOMANIA [None]
  - SEROTONIN SYNDROME [None]
